FAERS Safety Report 4732862-2 (Version None)
Quarter: 2005Q3

REPORT INFORMATION
  Report Type: 
  Country: None (occurrence: None)
  Receive Date: 20050803
  Receipt Date: 20050408
  Transmission Date: 20060218
  Serious: No
  Sender: FDA-Public Use
  Company Number: US-GLAXOSMITHKLINE-A0553400A

PATIENT
  Age: 61 Year
  Sex: Female
  Weight: 72.7 kg

DRUGS (6)
  1. AVANDAMET [Suspect]
     Route: 048
     Dates: start: 20030101, end: 20050407
  2. SOMA [Concomitant]
  3. DIOVAN [Concomitant]
  4. LORTAB [Concomitant]
  5. MORPHINE [Concomitant]
  6. ALLEGRA [Concomitant]

REACTIONS (1)
  - ABDOMINAL PAIN UPPER [None]
